FAERS Safety Report 24247617 (Version 1)
Quarter: 2024Q3

REPORT INFORMATION
  Report Type: Spontaneous
  Country: US (occurrence: US)
  Receive Date: 20240826
  Receipt Date: 20240826
  Transmission Date: 20241017
  Serious: No
  Sender: LEO PHARM
  Company Number: US-LEO Pharma-372957

PATIENT
  Age: 35 Year
  Sex: Female

DRUGS (4)
  1. ADBRY [Suspect]
     Active Substance: TRALOKINUMAB-LDRM
     Indication: Dermatitis allergic
     Dosage: INJECT 4 SYRINGES UNDER THE SKIN ON DAY 1
     Route: 058
     Dates: start: 202408
  2. ADBRY [Suspect]
     Active Substance: TRALOKINUMAB-LDRM
     Indication: Dermatitis allergic
     Dosage: START MAINTENANCE DOSING AS DIRECTED ON DAY 15
     Route: 058
  3. ADBRY [Suspect]
     Active Substance: TRALOKINUMAB-LDRM
     Indication: Dermatitis atopic
     Dosage: INJECT 4 SYRINGES UNDER THE SKIN ON DAY 1
     Route: 058
     Dates: start: 202408
  4. ADBRY [Suspect]
     Active Substance: TRALOKINUMAB-LDRM
     Indication: Dermatitis atopic
     Dosage: START MAINTENANCE DOSING AS DIRECTED ON DAY 15
     Route: 058

REACTIONS (1)
  - Erythema [Unknown]
